FAERS Safety Report 4264365-6 (Version None)
Quarter: 2004Q1

REPORT INFORMATION
  Report Type: 
  Country: None (occurrence: None)
  Receive Date: 20040106
  Receipt Date: 20040106
  Transmission Date: 20041129
  Serious: No
  Sender: FDA-Public Use
  Company Number: None

PATIENT
  Age: 59 Year
  Sex: Female
  Weight: 54.4316 kg

DRUGS (1)
  1. SEPTOCAINE [Suspect]
     Dates: start: 20031228, end: 20031228

REACTIONS (4)
  - GINGIVAL DISORDER [None]
  - NECROSIS [None]
  - PAIN [None]
  - SWELLING [None]
